FAERS Safety Report 6104350-2 (Version None)
Quarter: 2009Q1

REPORT INFORMATION
  Report Type: 
  Country: None (occurrence: None)
  Receive Date: 20090305
  Receipt Date: 20080617
  Transmission Date: 20090719
  Serious: Yes (Life-Threatening)
  Sender: FDA-Public Use
  Company Number: FR-PFIZER INC-2008051676

PATIENT

DRUGS (8)
  1. ZOLOFT [Suspect]
     Route: 048
  2. ATARAX [Suspect]
     Route: 048
  3. CLOZAPINE [Suspect]
     Dosage: UNK
     Route: 048
     Dates: end: 20030401
  4. SOLIAN [Suspect]
     Route: 048
     Dates: end: 20080304
  5. THERALENE [Suspect]
     Route: 048
  6. STILNOX [Suspect]
     Route: 048
  7. LEPTICUR [Suspect]
     Route: 048
  8. TRIMEPRAZINE TAB [Suspect]
     Dosage: UNK

REACTIONS (2)
  - CHRONIC LYMPHOCYTIC LEUKAEMIA [None]
  - LYMPHOCYTOSIS [None]
